FAERS Safety Report 18335311 (Version 2)
Quarter: 2020Q4

REPORT INFORMATION
  Report Type: Spontaneous
  Country: AU (occurrence: AU)
  Receive Date: 20201001
  Receipt Date: 20201015
  Transmission Date: 20210113
  Serious: Yes (Hospitalization, Other)
  Sender: FDA-Public Use
  Company Number: NVSC2020AU263312

PATIENT
  Age: 41 Year
  Sex: Female
  Weight: 84 kg

DRUGS (4)
  1. EVEROLIMUS. [Suspect]
     Active Substance: EVEROLIMUS
     Dosage: 4.75 MG, BID
     Route: 048
     Dates: start: 20200204
  2. TACROLIMUS. [Suspect]
     Active Substance: TACROLIMUS
     Dosage: 12 MG, QD
     Route: 048
     Dates: start: 20190802
  3. EVEROLIMUS. [Suspect]
     Active Substance: EVEROLIMUS
     Indication: PROPHYLAXIS
     Dosage: 10 MG, QD
     Route: 065
  4. TACROLIMUS. [Suspect]
     Active Substance: TACROLIMUS
     Indication: PROPHYLAXIS
     Dosage: 10 MG, QD
     Route: 065

REACTIONS (3)
  - Renal tubular necrosis [Not Recovered/Not Resolved]
  - Drug level above therapeutic [Unknown]
  - Renal failure [Unknown]

NARRATIVE: CASE EVENT DATE: 20200921
